FAERS Safety Report 10625270 (Version 2)
Quarter: 2014Q4

REPORT INFORMATION
  Report Type: Spontaneous
  Country: CH (occurrence: None)
  Receive Date: 20141202
  Receipt Date: 20141218
  Transmission Date: 20150529
  Serious: Yes (Other)
  Sender: FDA-Public Use
  Company Number: 20140761

PATIENT
  Age: 87 Year
  Sex: Female
  Weight: 72 kg

DRUGS (9)
  1. RAMIPRIL. [Concomitant]
     Active Substance: RAMIPRIL
  2. METOPROLOL SUCCINATE. [Concomitant]
     Active Substance: METOPROLOL SUCCINATE
  3. AMLODIPINE [Concomitant]
     Active Substance: AMLODIPINE BESYLATE
  4. AGGRENOX (ACETLSALICYLIC ACID) [Concomitant]
  5. ACETYLSALICYLIC ACID [Concomitant]
     Active Substance: ASPIRIN
  6. FERINJECT [Suspect]
     Active Substance: FERRIC CARBOXYMALTOSE
     Indication: DRUG INTOLERANCE
     Dosage: 500 MG (1 IN 1 TOTAL)
     Route: 041
     Dates: start: 20140916, end: 20140916
  7. FERINJECT [Suspect]
     Active Substance: FERRIC CARBOXYMALTOSE
     Indication: IRON DEFICIENCY ANAEMIA
     Dosage: 500 MG (1 IN 1 TOTAL)
     Route: 041
     Dates: start: 20140916, end: 20140916
  8. KEPINOL FORTE (SULFAMETHOXAZOLE FOR FIVE DAYSS) [Concomitant]
  9. HYDROCHLOROTHIAZIDE. [Concomitant]
     Active Substance: HYDROCHLOROTHIAZIDE

REACTIONS (7)
  - Night sweats [None]
  - Tremor [None]
  - Gait disturbance [None]
  - Restlessness [None]
  - Dizziness [None]
  - Insomnia [None]
  - Abdominal pain upper [None]

NARRATIVE: CASE EVENT DATE: 20140916
